FAERS Safety Report 6817543-3 (Version None)
Quarter: 2010Q3

REPORT INFORMATION
  Report Type: 
  Country: None (occurrence: None)
  Receive Date: 20100706
  Receipt Date: 20100625
  Transmission Date: 20110219
  Serious: No
  Sender: FDA-Public Use
  Company Number: US-JNJFOC-20100608369

PATIENT
  Sex: Female
  Weight: 68.04 kg

DRUGS (3)
  1. FENTANYL [Suspect]
     Indication: PAIN
     Dosage: START DATE MAY-2006
     Route: 062
  2. FENTANYL [Suspect]
     Dosage: 25UG/HR+12.5UG/HR
     Route: 062
  3. FENTANYL [Suspect]
     Route: 062

REACTIONS (6)
  - DRUG INEFFECTIVE [None]
  - IMPAIRED DRIVING ABILITY [None]
  - OVERDOSE [None]
  - SOMNOLENCE [None]
  - UNDERDOSE [None]
  - WRONG TECHNIQUE IN DRUG USAGE PROCESS [None]
